FAERS Safety Report 8582590-0 (Version None)
Quarter: 2012Q3

REPORT INFORMATION
  Report Type: 
  Country: None (occurrence: None)
  Receive Date: 20120809
  Receipt Date: 20120730
  Transmission Date: 20120928
  Serious: Yes (Hospitalization)
  Sender: FDA-Public Use
  Company Number: IT-ROCHE-1097077

PATIENT
  Age: 70 Year
  Sex: Female

DRUGS (2)
  1. CEFTRIAXONE [Suspect]
     Indication: COUGH
  2. CEFTRIAXONE [Suspect]
     Indication: PYREXIA
     Route: 030

REACTIONS (1)
  - STRESS CARDIOMYOPATHY [None]
